FAERS Safety Report 6509458-5 (Version None)
Quarter: 2009Q4

REPORT INFORMATION
  Report Type: 
  Country: None (occurrence: None)
  Receive Date: 20091222
  Receipt Date: 20091210
  Transmission Date: 20100525
  Serious: Yes (Hospitalization)
  Sender: FDA-Public Use
  Company Number: US-EISAI INC.-E7272-00042-CLI-US

PATIENT
  Age: 64 Year
  Sex: Female

DRUGS (1)
  1. ONTAK [Suspect]
     Route: 041
     Dates: start: 20091125, end: 20091130

REACTIONS (4)
  - NAUSEA [None]
  - NEUTROPENIA [None]
  - PYREXIA [None]
  - VOMITING [None]
